FAERS Safety Report 8534623-5 (Version None)
Quarter: 2012Q3

REPORT INFORMATION
  Report Type: 
  Country: None (occurrence: None)
  Receive Date: 20120724
  Receipt Date: 20120625
  Transmission Date: 20120928
  Serious: No
  Sender: FDA-Public Use
  Company Number: US-ASTRAZENECA-2009UW01369

PATIENT
  Age: 56 Year
  Sex: Female

DRUGS (3)
  1. PRILOSEC OTC [Suspect]
     Route: 048
  2. NEXIUM [Suspect]
     Route: 048
     Dates: start: 20040101, end: 20090107
  3. PRILOSEC [Suspect]
     Route: 048

REACTIONS (14)
  - VOMITING [None]
  - ADVERSE EVENT [None]
  - RESPIRATORY TRACT CONGESTION [None]
  - DRUG INEFFECTIVE [None]
  - FOOT FRACTURE [None]
  - CIRCUMSTANCE OR INFORMATION CAPABLE OF LEADING TO MEDICATION ERROR [None]
  - WEIGHT DECREASED [None]
  - DRUG DOSE OMISSION [None]
  - COUGH [None]
  - ABDOMINAL DISCOMFORT [None]
  - MALAISE [None]
  - ABDOMINAL PAIN UPPER [None]
  - FALL [None]
  - APHAGIA [None]
